FAERS Safety Report 23388147 (Version 2)
Quarter: 2024Q1

REPORT INFORMATION
  Report Type: Report from Study
  Country: US (occurrence: None)
  Receive Date: 20240110
  Receipt Date: 20240119
  Transmission Date: 20240410
  Serious: Yes (Other)
  Sender: FDA-Public Use
  Company Number: 2024A003484

PATIENT
  Sex: Male
  Weight: 66.2 kg

DRUGS (1)
  1. CALQUENCE [Suspect]
     Active Substance: ACALABRUTINIB
     Indication: Chronic lymphocytic leukaemia
     Route: 048
     Dates: start: 20210516

REACTIONS (3)
  - Meningioma [Unknown]
  - Anxiety [Unknown]
  - Magnetic resonance imaging head [Unknown]
